FAERS Safety Report 8530349-2 (Version None)
Quarter: 2012Q3

REPORT INFORMATION
  Report Type: 
  Country: None (occurrence: None)
  Receive Date: 20120723
  Receipt Date: 20120713
  Transmission Date: 20120928
  Serious: Yes (Other)
  Sender: FDA-Public Use
  Company Number: US-PFIZER INC-2012174624

PATIENT
  Age: 27 Year
  Sex: Male

DRUGS (2)
  1. MORPHINE [Suspect]
     Indication: DRUG ABUSE
     Route: 065
  2. OXYCODONE HYDROCHLORIDE [Suspect]
     Indication: DRUG ABUSE
     Route: 065

REACTIONS (2)
  - IMPAIRED DRIVING ABILITY [None]
  - DRUG ABUSE [None]
